FAERS Safety Report 7864679-4 (Version None)
Quarter: 2011Q4

REPORT INFORMATION
  Report Type: 
  Country: None (occurrence: None)
  Receive Date: 20111028
  Receipt Date: 20111026
  Transmission Date: 20120403
  Serious: Yes (Hospitalization, Other)
  Sender: FDA-Public Use
  Company Number: JP-PFIZER INC-2011201333

PATIENT
  Age: 80 Year
  Sex: Male

DRUGS (7)
  1. LYRICA [Suspect]
     Dosage: 150 MG (2 CAPSULES) DAILY
     Route: 048
     Dates: start: 20110720, end: 20110725
  2. ALLOPURINOL [Concomitant]
     Dosage: UNK
  3. LYRICA [Suspect]
     Indication: HYPOAESTHESIA
     Dosage: 75 MG (1 CAPSULE) DAILY
     Route: 048
     Dates: start: 20110715, end: 20110719
  4. NICERGOLINE [Concomitant]
     Dosage: UNK
  5. PLAVIX [Concomitant]
     Dosage: UNK
  6. ENTERONON [Concomitant]
     Dosage: UNK
  7. CLARITHROMYCIN [Concomitant]
     Dosage: UNK

REACTIONS (2)
  - HAEMOLYTIC ANAEMIA [None]
  - PAIN [None]
